FAERS Safety Report 5586137-2 (Version None)
Quarter: 2008Q1

REPORT INFORMATION
  Report Type: 
  Country: None (occurrence: None)
  Receive Date: 20080104
  Receipt Date: 20071221
  Transmission Date: 20080703
  Serious: Yes (Other)
  Sender: FDA-Public Use
  Company Number: 2007AP001290

PATIENT
  Age: 75 Year
  Sex: Male

DRUGS (6)
  1. APO-PENTOXIFYLLINE SR (PENTOXIFYLLINE) [Suspect]
     Indication: RAYNAUD'S PHENOMENON
     Dosage: 400 MG;TID; PO
     Route: 048
     Dates: start: 20050101
  2. ATORVASTATIN CALCIUM [Concomitant]
  3. LANSOPRAZOLE [Concomitant]
  4. HYDROCHLOROTHIAZIDE [Concomitant]
  5. RAMIPRIL [Concomitant]
  6. ACETYLSALICYLIC ACID SRT [Concomitant]

REACTIONS (4)
  - DRUG INEFFECTIVE [None]
  - DRY SKIN [None]
  - EPISTAXIS [None]
  - PROSTATE CANCER RECURRENT [None]
